FAERS Safety Report 6604256-6 (Version None)
Quarter: 2010Q1

REPORT INFORMATION
  Report Type: 
  Country: None (occurrence: None)
  Receive Date: 20100226
  Receipt Date: 20090715
  Transmission Date: 20100710
  Serious: No
  Sender: FDA-Public Use
  Company Number: A0798642A

PATIENT
  Sex: Male

DRUGS (1)
  1. LAMICTAL CD [Suspect]
     Indication: DRUG USE FOR UNKNOWN INDICATION
     Dosage: 200MG UNKNOWN
     Route: 048

REACTIONS (4)
  - PYREXIA [None]
  - RASH [None]
  - SKIN EXFOLIATION [None]
  - SWELLING [None]
